FAERS Safety Report 6166602-X (Version None)
Quarter: 2009Q2

REPORT INFORMATION
  Report Type: 
  Country: None (occurrence: None)
  Receive Date: 20090424
  Receipt Date: 20080626
  Transmission Date: 20091009
  Serious: No
  Sender: FDA-Public Use
  Company Number: US-ASTRAZENECA-2008UW12886

PATIENT
  Sex: Male

DRUGS (1)
  1. ZOMIG [Suspect]
     Route: 048
     Dates: start: 20080625

REACTIONS (1)
  - FEELING ABNORMAL [None]
